FAERS Safety Report 23994825 (Version 1)
Quarter: 2024Q2

REPORT INFORMATION
  Report Type: Spontaneous
  Country: ES (occurrence: ES)
  Receive Date: 20240620
  Receipt Date: 20240620
  Transmission Date: 20240716
  Serious: Yes (Life-Threatening, Hospitalization)
  Sender: FDA-Public Use
  Company Number: None

PATIENT
  Age: 37 Year
  Sex: Male

DRUGS (3)
  1. LORAZEPAM [Suspect]
     Active Substance: LORAZEPAM
     Dosage: 46 MG, SINGLE
     Route: 048
     Dates: start: 20240523, end: 20240523
  2. ACETAMINOPHEN [Suspect]
     Active Substance: ACETAMINOPHEN
     Dosage: 20 G, SINGLE
     Route: 048
     Dates: start: 20240523, end: 20240523
  3. IBUPROFEN [Suspect]
     Active Substance: IBUPROFEN
     Dosage: 6 G, SINGLE
     Route: 048
     Dates: start: 20240523, end: 20240523

REACTIONS (2)
  - Intentional overdose [Recovered/Resolved with Sequelae]
  - Acute hepatic failure [Recovered/Resolved with Sequelae]

NARRATIVE: CASE EVENT DATE: 20240523
